FAERS Safety Report 5602224-4 (Version None)
Quarter: 2008Q1

REPORT INFORMATION
  Report Type: 
  Country: None (occurrence: None)
  Receive Date: 20080125
  Receipt Date: 20080115
  Transmission Date: 20080703
  Serious: Yes (Hospitalization)
  Sender: FDA-Public Use
  Company Number: US-ASTRAZENECA-2007UW07233

PATIENT
  Age: 59 Year
  Sex: Male
  Weight: 104.5 kg

DRUGS (8)
  1. SEROQUEL [Suspect]
     Indication: INSOMNIA
     Route: 048
     Dates: start: 20010101
  2. SEROQUEL [Suspect]
     Indication: BIPOLAR DISORDER
     Route: 048
     Dates: start: 20010101
  3. SEROQUEL [Suspect]
     Indication: DEPRESSION
     Route: 048
     Dates: start: 20010101
  4. CLOZARIL [Concomitant]
     Dates: start: 20050101
  5. LEXAPRO [Concomitant]
  6. ENALAPRIL MALEATE [Concomitant]
  7. PLAVIX [Concomitant]
  8. LAMICTAL [Concomitant]

REACTIONS (8)
  - ASPIRATION [None]
  - CARDIAC DISORDER [None]
  - CHOLECYSTECTOMY [None]
  - GLYCOSURIA [None]
  - HYPERGLYCAEMIA [None]
  - PYREXIA [None]
  - TYPE 2 DIABETES MELLITUS [None]
  - VOMITING [None]
